FAERS Safety Report 6311430-5 (Version None)
Quarter: 2009Q3

REPORT INFORMATION
  Report Type: 
  Country: None (occurrence: None)
  Receive Date: 20090817
  Receipt Date: 20090809
  Transmission Date: 20100115
  Serious: Yes (Other)
  Sender: FDA-Public Use
  Company Number: US-PFIZER INC-2009201336

PATIENT
  Sex: Female
  Weight: 61 kg

DRUGS (9)
  1. GENOTROPIN [Suspect]
     Indication: HYPOPITUITARISM
     Dosage: UNK
     Dates: start: 20000101
  2. DDAVP [Concomitant]
     Dosage: UNK
  3. SYNTHROID [Concomitant]
     Dosage: UNK
  4. HYDROCORTISONE [Concomitant]
     Dosage: UNK
  5. PREMPRO [Concomitant]
  6. AMPHETAMINE SULFATE [Concomitant]
     Dosage: UNK
  7. CALCIUM [Concomitant]
     Dosage: UNK
  8. VITAMIN B COMPLEX CAP [Concomitant]
     Dosage: UNK
  9. BIOTIN [Concomitant]
     Dosage: UNK

REACTIONS (1)
  - BRAIN NEOPLASM [None]
